FAERS Safety Report 5009072-7 (Version None)
Quarter: 2006Q2

REPORT INFORMATION
  Report Type: 
  Country: None (occurrence: None)
  Receive Date: 20060519
  Receipt Date: 20060505
  Transmission Date: 20061013
  Serious: Yes (Hospitalization)
  Sender: FDA-Public Use
  Company Number: 221467

PATIENT
  Age: 80 Year
  Sex: Male
  Weight: 66.4 kg

DRUGS (15)
  1. AVASTIN [Suspect]
     Indication: GALLBLADDER CANCER
     Dosage: 5 MG/KG, Q2W, INTRAVENOUS
     Route: 042
     Dates: start: 20051205, end: 20060103
  2. CAPECITABINE (CAPECITABINE) [Suspect]
     Indication: GALLBLADDER CANCER
     Dosage: 825 MG/M2, BID, ORAL
     Route: 048
     Dates: start: 20051205, end: 20060107
  3. OXALIPLATIN (OXALIPLATIN) [Suspect]
     Indication: GALLBLADDER CANCER
     Dosage: 50 MG/M2, 1/WEEK, INTRAVENOUS
     Route: 042
     Dates: start: 20051205, end: 20060103
  4. ASPIRIN [Concomitant]
  5. MV (MULTIVITAMINS NOS) [Concomitant]
  6. HCTZ (HYDROCHLOROTHIAZIDE) [Concomitant]
  7. DEXAMETHASONE [Concomitant]
  8. ONDANSETRON [Concomitant]
  9. LORAZEPAM [Concomitant]
  10. COMPAZINE [Concomitant]
  11. TOPROL-XL [Concomitant]
  12. MEGACE [Concomitant]
  13. OMEPRAZOLE [Concomitant]
  14. THORAZINE [Concomitant]
  15. BACLOFEN [Concomitant]

REACTIONS (15)
  - ACQUIRED DIAPHRAGMATIC EVENTRATION [None]
  - ARRHYTHMIA [None]
  - ASTHENIA [None]
  - ATELECTASIS [None]
  - CHOLANGITIS [None]
  - COUGH [None]
  - DEHYDRATION [None]
  - DISEASE PROGRESSION [None]
  - FAILURE TO THRIVE [None]
  - HICCUPS [None]
  - LUNG DISORDER [None]
  - PLEURAL EFFUSION [None]
  - PNEUMONIA [None]
  - PYREXIA [None]
  - STENT OCCLUSION [None]
